FAERS Safety Report 7495305-4 (Version None)
Quarter: 2011Q2

REPORT INFORMATION
  Report Type: 
  Country: None (occurrence: None)
  Receive Date: 20110523
  Receipt Date: 20110511
  Transmission Date: 20111010
  Serious: Yes (Death)
  Sender: FDA-Public Use
  Company Number: US-BIOGENIDEC-2010BI009514

PATIENT
  Age: 57 Year
  Sex: Female
  Weight: 87 kg

DRUGS (11)
  1. SYNTHROID [Concomitant]
     Indication: HYPOTHYROIDISM
     Route: 048
     Dates: start: 20080319, end: 20100226
  2. NORCO [Concomitant]
     Indication: PAIN
     Route: 048
     Dates: start: 20081203, end: 20100226
  3. CYMBALTA [Concomitant]
     Indication: DEPRESSION
     Route: 048
     Dates: start: 20090323, end: 20100226
  4. TYSABRI [Suspect]
     Indication: MULTIPLE SCLEROSIS
     Route: 042
     Dates: start: 20070913, end: 20100105
  5. PROVIGIL [Concomitant]
     Indication: FATIGUE
     Route: 048
     Dates: start: 20081108, end: 20100226
  6. VOLTAREN [Concomitant]
     Indication: ARTHRALGIA
     Route: 061
     Dates: start: 20090227, end: 20100226
  7. KEPPRA XR [Concomitant]
     Indication: CONVULSION
     Route: 048
     Dates: start: 20100202, end: 20100226
  8. DIPHENHYDRAMINE HCL [Concomitant]
  9. FENTANYL [Concomitant]
  10. CITALOPRAM HYDROBROMIDE [Concomitant]
  11. IMITREX [Concomitant]
     Indication: HEADACHE
     Route: 048
     Dates: start: 20090323, end: 20100226

REACTIONS (1)
  - TOXICITY TO VARIOUS AGENTS [None]
